FAERS Safety Report 4997183-1 (Version None)
Quarter: 2006Q2

REPORT INFORMATION
  Report Type: 
  Country: None (occurrence: None)
  Receive Date: 20060508
  Receipt Date: 20060508
  Transmission Date: 20061013
  Serious: No
  Sender: FDA-Public Use
  Company Number: None

PATIENT
  Age: 76 Year
  Sex: Female
  Weight: 62.5964 kg

DRUGS (1)
  1. ACTONEL [Suspect]
     Dosage: ONCE WEEKLY

REACTIONS (5)
  - FAILURE OF IMPLANT [None]
  - IMPAIRED HEALING [None]
  - IMPLANT SITE REACTION [None]
  - ORAL SOFT TISSUE DISORDER [None]
  - TOOTH DISORDER [None]
